FAERS Safety Report 16869065 (Version 1)
Quarter: 2019Q3

REPORT INFORMATION
  Report Type: Report from Study
  Country: SE (occurrence: SE)
  Receive Date: 20190930
  Receipt Date: 20190930
  Transmission Date: 20191005
  Serious: Yes (Hospitalization, Other)
  Sender: FDA-Public Use
  Company Number: SE-BRISTOL-MYERS SQUIBB COMPANY-BMS-2019-089690

PATIENT
  Age: 74 Year
  Sex: Male
  Weight: 180 kg

DRUGS (8)
  1. SALURES [Concomitant]
     Active Substance: BENDROFLUMETHIAZIDE
     Indication: HYPOTENSION
     Dosage: 1 DOSAGE FORM, QD
     Route: 065
  2. FINASTERIDE SANDOZ [Concomitant]
     Indication: PROSTATOMEGALY
     Dosage: 1 DOSAGE FORM, QD
     Route: 065
  3. ALVEDON [Concomitant]
     Active Substance: ACETAMINOPHEN
     Indication: PAIN
     Dosage: UNK
     Route: 065
  4. ALFUZOSIN ACTAVIS [Concomitant]
     Active Substance: ALFUZOSIN
     Indication: MICTURITION DISORDER
     Dosage: 1 DOSAGE FORM, QD
     Route: 065
  5. ATORVASTATIN ACTAVIS [ATORVASTATIN CALCIUM] [Concomitant]
     Indication: LIPIDS DECREASED
     Dosage: 1 DOSAGE FORM, QD
     Route: 065
  6. EMCONCOR [Concomitant]
     Active Substance: BISOPROLOL FUMARATE
     Indication: CARDIAC FAILURE CONGESTIVE
     Dosage: 1 DOSAGE FORM, QD
     Route: 065
  7. CANDESARSTAD [Concomitant]
     Indication: PRODUCT USED FOR UNKNOWN INDICATION
     Dosage: 1 DOSAGE FORM DAILY
     Route: 065
  8. APIXABAN [Suspect]
     Active Substance: APIXABAN
     Indication: CEREBROVASCULAR ACCIDENT PROPHYLAXIS
     Dosage: 5 MILLIGRAM, BID
     Route: 065
     Dates: start: 20190815

REACTIONS (3)
  - Constipation [Not Recovered/Not Resolved]
  - Flatulence [Not Recovered/Not Resolved]
  - Tension [Not Recovered/Not Resolved]

NARRATIVE: CASE EVENT DATE: 20190827
